FAERS Safety Report 18607975 (Version 2)
Quarter: 2020Q4

REPORT INFORMATION
  Report Type: Other
  Country: CA (occurrence: CA)
  Receive Date: 20201211
  Receipt Date: 20201227
  Transmission Date: 20210114
  Serious: Yes (Hospitalization, Other)
  Sender: FDA-Public Use
  Company Number: CA-CELLTRION INC.-2020CA033360

PATIENT

DRUGS (21)
  1. RITUXIMAB (UNKNOWN) [Suspect]
     Active Substance: RITUXIMAB
     Indication: PRODUCT USED FOR UNKNOWN INDICATION
     Dosage: 630.0 MILLIGRAM, 1 EVERY 3 WEEKS
     Route: 042
  2. NEULASTA [Suspect]
     Active Substance: PEGFILGRASTIM
     Indication: PRODUCT USED FOR UNKNOWN INDICATION
     Route: 058
  3. PREDNISONE. [Suspect]
     Active Substance: PREDNISONE
     Indication: PRODUCT USED FOR UNKNOWN INDICATION
     Dosage: 100.0 MILLIGRAM, 1 EVERY 3 WEEKS
     Route: 048
  4. FISH OIL [Suspect]
     Active Substance: FISH OIL
     Indication: PRODUCT USED FOR UNKNOWN INDICATION
     Route: 065
  5. FLUDARABINE [Suspect]
     Active Substance: FLUDARABINE PHOSPHATE
     Indication: PRODUCT USED FOR UNKNOWN INDICATION
     Route: 065
  6. VINCRISTINE SULFATE. [Suspect]
     Active Substance: VINCRISTINE SULFATE
     Indication: PRODUCT USED FOR UNKNOWN INDICATION
     Dosage: 2.0 MILLIGRAM
     Route: 042
  7. ERGOCALCIFEROL. [Concomitant]
     Active Substance: ERGOCALCIFEROL
     Indication: PRODUCT USED FOR UNKNOWN INDICATION
     Route: 065
  8. NEULASTA [Suspect]
     Active Substance: PEGFILGRASTIM
     Indication: PRODUCT USED FOR UNKNOWN INDICATION
     Dosage: CYCLICAL
     Route: 058
  9. PROCYTOX [Suspect]
     Active Substance: CYCLOPHOSPHAMIDE
     Indication: PRODUCT USED FOR UNKNOWN INDICATION
     Dosage: 750.0 MG/M2, 1 EVERY 3 WEEKS
     Route: 042
  10. VINCRISTINE [Suspect]
     Active Substance: VINCRISTINE
     Indication: PRODUCT USED FOR UNKNOWN INDICATION
     Dosage: 2.0 MILLIGRAM, 1 EVERY 3 WEEKS
     Route: 042
  11. BENADRYL [Concomitant]
     Active Substance: DIPHENHYDRAMINE HYDROCHLORIDE
     Indication: PRODUCT USED FOR UNKNOWN INDICATION
     Route: 065
  12. COD LIVER OIL [Concomitant]
     Active Substance: COD LIVER OIL
     Route: 065
  13. RITUXIMAB (UNKNOWN) [Suspect]
     Active Substance: RITUXIMAB
     Dosage: 375.0 MG/M2, 1 EVERY 3 WEEKS
     Route: 042
  14. PROCHLORPERAZINE. [Concomitant]
     Active Substance: PROCHLORPERAZINE
     Indication: PRODUCT USED FOR UNKNOWN INDICATION
     Route: 065
  15. DOXORUBICIN HYDROCHLORIDE. [Suspect]
     Active Substance: DOXORUBICIN HYDROCHLORIDE
     Indication: PRODUCT USED FOR UNKNOWN INDICATION
     Dosage: 50.0 MG/M2
     Route: 042
  16. FILGRASTIM [Suspect]
     Active Substance: FILGRASTIM
     Indication: PRODUCT USED FOR UNKNOWN INDICATION
     Dosage: CYCLICAL
     Route: 042
  17. RITUXIMAB (UNKNOWN) [Suspect]
     Active Substance: RITUXIMAB
     Dosage: 645.0 MILLIGRAM, 1 EVERY 4 WEEKS
     Route: 041
  18. RITUXIMAB (UNKNOWN) [Suspect]
     Active Substance: RITUXIMAB
     Dosage: 840.0 MILLIGRAM, 1 EVERY 3 WEEKS
     Route: 042
  19. DOXORUBICIN [Suspect]
     Active Substance: DOXORUBICIN
     Indication: PRODUCT USED FOR UNKNOWN INDICATION
     Dosage: 50.0 MG/M2, 1 EVERY 3 WEEKS
     Route: 042
  20. FLUDARABINE PHOSPHATE. [Suspect]
     Active Substance: FLUDARABINE PHOSPHATE
     Indication: PRODUCT USED FOR UNKNOWN INDICATION
     Route: 065
  21. DYCLONINE HYDROCHLORIDE [Concomitant]
     Active Substance: DYCLONINE HYDROCHLORIDE
     Indication: PRODUCT USED FOR UNKNOWN INDICATION
     Route: 065

REACTIONS (23)
  - Productive cough [Unknown]
  - Hypotension [Unknown]
  - Muscle twitching [Unknown]
  - Thrombosis [Unknown]
  - Blood magnesium decreased [Unknown]
  - Asthenia [Unknown]
  - Malaise [Unknown]
  - Lymph node pain [Unknown]
  - Neoplasm progression [Unknown]
  - Febrile neutropenia [Unknown]
  - Pyrexia [Unknown]
  - Disease progression [Unknown]
  - Heart rate abnormal [Unknown]
  - Platelet count decreased [Unknown]
  - Clostridium difficile infection [Unknown]
  - Fatigue [Unknown]
  - Infection [Unknown]
  - Lymphadenitis [Unknown]
  - Arthralgia [Unknown]
  - Lymphadenopathy [Unknown]
  - Nausea [Unknown]
  - Weight decreased [Unknown]
  - White blood cell count decreased [Unknown]
